FAERS Safety Report 20774271 (Version 1)
Quarter: 2022Q2

REPORT INFORMATION
  Report Type: Spontaneous
  Country: US (occurrence: US)
  Receive Date: 20220502
  Receipt Date: 20220502
  Transmission Date: 20220720
  Serious: No
  Sender: FDA-Public Use
  Company Number: US-PFIZER INC-202100918689

PATIENT
  Age: 25 Year
  Sex: Female

DRUGS (1)
  1. PRISTIQ EXTENDED-RELEASE [Suspect]
     Active Substance: DESVENLAFAXINE SUCCINATE
     Dosage: UNK

REACTIONS (9)
  - Fear [Unknown]
  - Nasal congestion [Unknown]
  - Disturbance in attention [Unknown]
  - Eye disorder [Unknown]
  - Ocular discomfort [Unknown]
  - Thinking abnormal [Unknown]
  - Anxiety [Unknown]
  - Depressed mood [Unknown]
  - Paranasal sinus discomfort [Unknown]
